FAERS Safety Report 10083962 (Version 1)
Quarter: 2014Q2

REPORT INFORMATION
  Report Type: Spontaneous
  Country: IN (occurrence: IN)
  Receive Date: 20140417
  Receipt Date: 20140417
  Transmission Date: 20141212
  Serious: Yes (Death)
  Sender: FDA-Public Use
  Company Number: PHHY2014IN046764

PATIENT
  Age: 50 Year
  Sex: Male

DRUGS (1)
  1. ASUNRA [Suspect]
     Indication: IRON OVERLOAD
     Dosage: 800 MG, UNK
     Route: 048

REACTIONS (1)
  - Myocardial infarction [Fatal]
